FAERS Safety Report 7689213-3 (Version None)
Quarter: 2011Q3

REPORT INFORMATION
  Report Type: 
  Country: None (occurrence: None)
  Receive Date: 20110817
  Receipt Date: 20110808
  Transmission Date: 20111222
  Serious: Yes (Other)
  Sender: FDA-Public Use
  Company Number: US-CEPHALON-US022949

PATIENT
  Sex: Female
  Weight: 57 kg

DRUGS (7)
  1. PROVIGIL [Suspect]
     Indication: NARCOLEPSY
     Route: 048
     Dates: start: 19990101, end: 20080310
  2. DETROL AL [Concomitant]
     Indication: INCONTINENCE
     Route: 048
  3. VITAMIN TAB [Concomitant]
     Indication: MEDICAL DIET
     Route: 048
  4. PROVIGIL [Suspect]
     Route: 048
     Dates: start: 20080311
  5. ZETIA [Concomitant]
     Indication: BLOOD CHOLESTEROL INCREASED
     Route: 048
     Dates: start: 20070101
  6. COREG [Concomitant]
     Indication: BLOOD PRESSURE INCREASED
     Route: 048
     Dates: start: 20050101
  7. MICARDIS HCT [Concomitant]
     Indication: BLOOD PRESSURE INCREASED
     Route: 048
     Dates: start: 20050101

REACTIONS (4)
  - RASH PRURITIC [None]
  - RASH MACULAR [None]
  - RASH ERYTHEMATOUS [None]
  - TRANSIENT ACANTHOLYTIC DERMATOSIS [None]
